FAERS Safety Report 24110684 (Version 3)
Quarter: 2024Q3

REPORT INFORMATION
  Report Type: Report from Study
  Country: US (occurrence: US)
  Receive Date: 20240718
  Receipt Date: 20240911
  Transmission Date: 20241017
  Serious: No
  Sender: PFIZER
  Company Number: US-PFIZER INC-202400217751

PATIENT
  Age: 63 Year
  Sex: Female

DRUGS (1)
  1. TUKYSA [Suspect]
     Active Substance: TUCATINIB
     Dosage: 300 MG, 2X/DAY (EVERY 12 HOURS)
     Route: 048
     Dates: start: 20240620

REACTIONS (10)
  - Fatigue [Unknown]
  - Nodule [Unknown]
  - Headache [Unknown]
  - Sinus disorder [Unknown]
  - Flatulence [Unknown]
  - Gastrooesophageal reflux disease [Unknown]
  - Nausea [Unknown]
  - Eructation [Unknown]
  - Pain [Unknown]
  - Diarrhoea [Unknown]
